FAERS Safety Report 6138414-4 (Version None)
Quarter: 2009Q1

REPORT INFORMATION
  Report Type: 
  Country: None (occurrence: None)
  Receive Date: 20090331
  Receipt Date: 20090324
  Transmission Date: 20090719
  Serious: Yes (Other)
  Sender: FDA-Public Use
  Company Number: PHHO2007FR12711

PATIENT
  Sex: Male

DRUGS (8)
  1. LDT600 LDT+TAB [Suspect]
     Indication: HEPATITIS B
     Dosage: 600 MG,
     Route: 048
     Dates: start: 20050831, end: 20070522
  2. BETAHISTINE [Concomitant]
     Indication: VERTIGO
  3. BETAINE [Concomitant]
     Indication: ABDOMINAL PAIN
  4. ACETYLLEUCINE [Concomitant]
     Indication: VERTIGO
  5. CALCIUM D3 [Concomitant]
     Indication: MYALGIA
  6. MAGNESIUM SULFATE [Concomitant]
     Indication: MYALGIA
  7. ADEFOVIR DIPIVOXIL KIT [Concomitant]
     Indication: HEPATITIS B
  8. LAMIVUDINE [Concomitant]
     Indication: HEPATITIS B

REACTIONS (6)
  - ASPARTATE AMINOTRANSFERASE INCREASED [None]
  - BLOOD CREATINE PHOSPHOKINASE INCREASED [None]
  - MITOCHONDRIAL MYOPATHY [None]
  - MUSCLE NECROSIS [None]
  - MYALGIA [None]
  - PAIN [None]
